FAERS Safety Report 5950075-3 (Version None)
Quarter: 2008Q4

REPORT INFORMATION
  Report Type: 
  Country: None (occurrence: None)
  Receive Date: 20081112
  Receipt Date: 20081106
  Transmission Date: 20090506
  Serious: Yes (Hospitalization)
  Sender: FDA-Public Use
  Company Number: NL-AMGEN-UK309656

PATIENT
  Sex: Female

DRUGS (5)
  1. NEULASTA [Suspect]
     Indication: DRUG USE FOR UNKNOWN INDICATION
     Route: 058
     Dates: start: 20080614
  2. DOCETAXEL [Suspect]
     Dates: start: 20080613
  3. DOXORUBICIN HYDROCHLORIDE [Suspect]
     Dates: start: 20080613
  4. CYCLOPHOSPHAMIDE [Suspect]
     Dates: start: 20080613
  5. PANTOZOL [Concomitant]
     Route: 065

REACTIONS (3)
  - EAR PAIN [None]
  - LYMPHADENOPATHY [None]
  - PYREXIA [None]
